FAERS Safety Report 7169930-4 (Version None)
Quarter: 2010Q4

REPORT INFORMATION
  Report Type: 
  Country: None (occurrence: None)
  Receive Date: 20101206
  Receipt Date: 20101119
  Transmission Date: 20110411
  Serious: Yes (Hospitalization, Other)
  Sender: FDA-Public Use
  Company Number: AUR-APL-2010-02908

PATIENT
  Age: 63 Year
  Sex: Male
  Weight: 76 kg

DRUGS (2)
  1. SIMVASTATIN [Suspect]
     Dosage: ORAL
     Route: 048
  2. CARDICOR [Suspect]
     Dosage: ORAL
     Route: 048

REACTIONS (3)
  - CARDIAC DISORDER [None]
  - CHEST PAIN [None]
  - DYSPNOEA [None]
